FAERS Safety Report 20353249 (Version 3)
Quarter: 2022Q1

REPORT INFORMATION
  Report Type: Report from Study
  Country: US (occurrence: US)
  Receive Date: 20220119
  Receipt Date: 20220304
  Transmission Date: 20220423
  Serious: Yes (Other)
  Sender: FDA-Public Use
  Company Number: US-Taiho Oncology Inc-EU-2021-04064

PATIENT
  Age: 65 Year
  Sex: Female

DRUGS (13)
  1. LONSURF [Suspect]
     Active Substance: TIPIRACIL HYDROCHLORIDE\TRIFLURIDINE
     Indication: Colon cancer
     Dosage: CYCLE 1
     Route: 048
     Dates: start: 20211201
  2. LONSURF [Suspect]
     Active Substance: TIPIRACIL HYDROCHLORIDE\TRIFLURIDINE
     Route: 048
     Dates: start: 20211216
  3. LONSURF [Suspect]
     Active Substance: TIPIRACIL HYDROCHLORIDE\TRIFLURIDINE
     Dosage: CYCLE 2
     Route: 048
     Dates: start: 20220106
  4. LISINOPRIL [Concomitant]
     Active Substance: LISINOPRIL
     Route: 048
     Dates: start: 20211025
  5. TRAVOPROST [Concomitant]
     Active Substance: TRAVOPROST
  6. GRANISETRON HYDROCHLORIDE [Concomitant]
     Active Substance: GRANISETRON HYDROCHLORIDE
     Dosage: ON DAYS OF CHEMOTHERAPY.
     Route: 048
     Dates: start: 20220106
  7. SANCUSO [Concomitant]
     Active Substance: GRANISETRON
     Dosage: TO THE UPPER OUTER ARM 48 HOURS BEFORE CHEMO THERAPY AND REMOVE AFTER 3 DAYS
     Route: 062
     Dates: start: 20220102
  8. LIDOCAINE\PRILOCAINE [Concomitant]
     Active Substance: LIDOCAINE\PRILOCAINE
     Dosage: 2.5-2.5%. APPLY TO PORT SITE APPROXIMATELY 30 TO 45 MINUTES PRIOR TO ACCESS.
     Dates: start: 20211026
  9. MELATONIN [Concomitant]
     Active Substance: MELATONIN
     Indication: Sleep disorder
     Route: 048
     Dates: start: 20211005
  10. ACETAMINOPHEN [Concomitant]
     Active Substance: ACETAMINOPHEN
     Dates: start: 20210804
  11. DORZOLAMIDE [Concomitant]
     Active Substance: DORZOLAMIDE
     Dosage: INSTILL ONE DROP 2 TIMES EVERY DAY INTO AFFECTED EYE(S)
     Route: 047
  12. TRAVATAN Z [Concomitant]
     Active Substance: TRAVOPROST
     Dosage: INSTILL ONE DROP EVERY DAY INTO AFFECTED EYE(S) IN THE EVENING.
     Route: 047
  13. ATIVAN [Concomitant]
     Active Substance: LORAZEPAM
     Indication: Nausea
     Dosage: 1-2 TIMES AS REQUIRED
     Route: 048
     Dates: start: 20210602

REACTIONS (2)
  - Disease progression [Unknown]
  - Viral infection [Unknown]

NARRATIVE: CASE EVENT DATE: 20211201
